FAERS Safety Report 10307337 (Version 2)
Quarter: 2014Q3

REPORT INFORMATION
  Report Type: Spontaneous
  Country: ES (occurrence: ES)
  Receive Date: 20140716
  Receipt Date: 20140725
  Transmission Date: 20150326
  Serious: Yes (Life-Threatening)
  Sender: FDA-Public Use
  Company Number: ES-ACCORD-024759

PATIENT
  Age: 63 Year
  Sex: Female
  Weight: 69 kg

DRUGS (2)
  1. ACCORD PACLITAXEL [Suspect]
     Active Substance: PACLITAXEL
     Indication: RETROPERITONEAL NEOPLASM
     Dosage: ON 12-JUN-2014, DRUG WAS RE-ADMINISTERED.? STRENGTH: 6 MG/ML. 290 MG EVERY 3 WEEKS.
     Route: 042
     Dates: start: 20140522, end: 20140522
  2. DOCETAXEL [Concomitant]
     Active Substance: DOCETAXEL
     Indication: OVARIAN CANCER STAGE IV
     Route: 042

REACTIONS (3)
  - Abdominal pain [Recovered/Resolved]
  - Respiratory arrest [Recovered/Resolved]
  - Photopsia [Recovered/Resolved]

NARRATIVE: CASE EVENT DATE: 20140522
